FAERS Safety Report 22281085 (Version 1)
Quarter: 2023Q2

REPORT INFORMATION
  Report Type: Spontaneous
  Country: US (occurrence: US)
  Receive Date: 20230504
  Receipt Date: 20230504
  Transmission Date: 20230722
  Serious: Yes (Hospitalization, Other)
  Sender: FDA-Public Use
  Company Number: US-002147023-NVSC2023US098526

PATIENT
  Age: 18 Year
  Sex: Female
  Weight: 74.376 kg

DRUGS (2)
  1. ZOMETA [Suspect]
     Active Substance: ZOLEDRONIC ACID
     Indication: Product used for unknown indication
     Dosage: UNK UNK, ONCE/SINGLE
     Route: 042
     Dates: start: 20200224
  2. IBRANCE [Suspect]
     Active Substance: PALBOCICLIB
     Indication: Breast cancer metastatic
     Dosage: 125 MG (EVERY TWO DAYS)
     Route: 065
     Dates: start: 202302

REACTIONS (15)
  - White blood cell count decreased [Recovered/Resolved]
  - Recurrent cancer [Unknown]
  - Nausea [Recovered/Resolved]
  - COVID-19 [Unknown]
  - Drug hypersensitivity [Unknown]
  - Nightmare [Unknown]
  - Peripheral swelling [Unknown]
  - Gait inability [Unknown]
  - Epistaxis [Recovered/Resolved]
  - Pain [Unknown]
  - Abdominal discomfort [Unknown]
  - Mental disorder [Unknown]
  - Chills [Unknown]
  - Vomiting [Unknown]
  - Pyrexia [Unknown]

NARRATIVE: CASE EVENT DATE: 20200201
